FAERS Safety Report 5542946-7 (Version None)
Quarter: 2007Q4

REPORT INFORMATION
  Report Type: 
  Country: None (occurrence: None)
  Receive Date: 20071210
  Receipt Date: 20071128
  Transmission Date: 20080405
  Serious: Yes (Hospitalization)
  Sender: FDA-Public Use
  Company Number: FR-PFIZER INC-2007100004

PATIENT
  Sex: Female

DRUGS (8)
  1. DALACINE [Suspect]
     Indication: STAPHYLOCOCCAL INFECTION
     Route: 048
  2. ORBENINE [Suspect]
     Indication: OSTEITIS
     Route: 048
     Dates: start: 20070323, end: 20070406
  3. SEVREDOL [Suspect]
     Indication: BONE PAIN
     Route: 048
  4. SKENAN [Suspect]
     Indication: BONE PAIN
     Route: 048
     Dates: start: 20070314, end: 20070328
  5. LASIX [Suspect]
     Route: 048
     Dates: start: 20070324, end: 20070329
  6. DIFFU K [Suspect]
     Route: 048
  7. PIPERACILLIN AND TAZOBACTAM [Concomitant]
     Dates: start: 20070320, end: 20070321
  8. CIFLOX [Concomitant]
     Dates: start: 20070320, end: 20070321

REACTIONS (1)
  - CONFUSIONAL STATE [None]
